FAERS Safety Report 17009099 (Version 1)
Quarter: 2019Q4

REPORT INFORMATION
  Report Type: Spontaneous
  Country: US (occurrence: US)
  Receive Date: 20191108
  Receipt Date: 20191108
  Transmission Date: 20200122
  Serious: Yes (Hospitalization, Other)
  Sender: FDA-Public Use
  Company Number: US-APOTEX-2019AP024462

PATIENT
  Age: 15 Year
  Sex: Female

DRUGS (1)
  1. AMLODIPINE [Suspect]
     Active Substance: AMLODIPINE BESYLATE
     Indication: HEADACHE
     Dosage: 30 MG, UNK
     Route: 048

REACTIONS (11)
  - Shock [Unknown]
  - Vasoplegia syndrome [Unknown]
  - Swollen tongue [Unknown]
  - Vomiting [Unknown]
  - Circulatory collapse [Unknown]
  - Haemoptysis [Unknown]
  - Lactic acidosis [Unknown]
  - Hypersensitivity [Unknown]
  - Respiratory failure [Unknown]
  - Acute kidney injury [Unknown]
  - Accidental exposure to product [Unknown]
